FAERS Safety Report 24462806 (Version 1)
Quarter: 2024Q4

REPORT INFORMATION
  Report Type: Spontaneous
  Country: US (occurrence: US)
  Receive Date: 20241018
  Receipt Date: 20241018
  Transmission Date: 20250114
  Serious: No
  Sender: Haleon PLC
  Company Number: US-HALEON-2203176

PATIENT
  Age: 65 Year
  Sex: Female

DRUGS (1)
  1. FLONASE ALLERGY RELIEF [Suspect]
     Active Substance: FLUTICASONE PROPIONATE
     Indication: Product used for unknown indication
     Dates: start: 20241003, end: 20241008

REACTIONS (1)
  - Hypogeusia [Recovered/Resolved]

NARRATIVE: CASE EVENT DATE: 20241006
